FAERS Safety Report 9390871 (Version 1)
Quarter: 2013Q3

REPORT INFORMATION
  Report Type: Spontaneous
  Country: GB (occurrence: GB)
  Receive Date: 20130709
  Receipt Date: 20130709
  Transmission Date: 20140515
  Serious: Yes (Other)
  Sender: FDA-Public Use
  Company Number: PHFR2013GB003784

PATIENT
  Age: 63 Year
  Sex: Female
  Weight: 71 kg

DRUGS (2)
  1. CARBAMAZEPINE [Suspect]
     Indication: BIPOLAR DISORDER
     Dosage: 500 MG, DAILY (ONE 200MG DOSE AND ONE 300MG DOSE)
  2. AUDMONAL [Suspect]
     Indication: IRRITABLE BOWEL SYNDROME
     Dosage: 60 MG, BID (60 TO 120 MG UP TO 3)
     Dates: start: 20130613, end: 20130614

REACTIONS (5)
  - Lip swelling [Recovering/Resolving]
  - Photophobia [Recovering/Resolving]
  - Frequent bowel movements [Recovering/Resolving]
  - Dizziness [Recovering/Resolving]
  - Vomiting [Recovering/Resolving]
